FAERS Safety Report 6250559-7 (Version None)
Quarter: 2009Q2

REPORT INFORMATION
  Report Type: 
  Country: None (occurrence: None)
  Receive Date: 20090630
  Receipt Date: 20090617
  Transmission Date: 20091009
  Serious: Yes (Hospitalization)
  Sender: FDA-Public Use
  Company Number: AU-PFIZER INC-2009229216

PATIENT
  Age: 31 Year

DRUGS (1)
  1. CHAMPIX [Suspect]
     Indication: SMOKING CESSATION THERAPY
     Dosage: UNK

REACTIONS (10)
  - ANGER [None]
  - ANXIETY [None]
  - CONFUSIONAL STATE [None]
  - CRYING [None]
  - FORMICATION [None]
  - HALLUCINATION [None]
  - HEART RATE INCREASED [None]
  - MOOD SWINGS [None]
  - PARANOIA [None]
  - WEIGHT DECREASED [None]
